FAERS Safety Report 10516519 (Version 1)
Quarter: 2014Q4

REPORT INFORMATION
  Report Type: Spontaneous
  Country: US (occurrence: None)
  Receive Date: 20141003
  Receipt Date: 20141003
  Transmission Date: 20150528
  Serious: Yes (Life-Threatening, Hospitalization)
  Sender: FDA-Public Use
  Company Number: 1357337

PATIENT
  Age: 33 Year
  Sex: Male
  Weight: 105.01 kg

DRUGS (3)
  1. COPEGUS [Suspect]
     Active Substance: RIBAVIRIN
     Indication: HEPATITIS C
     Route: 048
     Dates: start: 20140215, end: 20140216
  2. PEGASYS [Suspect]
     Active Substance: PEGINTERFERON ALFA-2A
     Indication: HEPATITIS C
     Route: 058
     Dates: start: 20140215, end: 20140215
  3. SOVALDI(SOFOSBUVIR) [Concomitant]

REACTIONS (2)
  - Pyrexia [None]
  - Seizure [None]

NARRATIVE: CASE EVENT DATE: 20140215
